FAERS Safety Report 4422471-7 (Version None)
Quarter: 2004Q3

REPORT INFORMATION
  Report Type: 
  Country: None (occurrence: None)
  Receive Date: 20040806
  Receipt Date: 20040720
  Transmission Date: 20050211
  Serious: Yes (Other)
  Sender: FDA-Public Use
  Company Number: 2004S1000060

PATIENT
  Sex: Female

DRUGS (1)
  1. SORIATANE (SORIATANE) [Suspect]
     Dates: end: 20031001

REACTIONS (1)
  - PREGNANCY [None]
